FAERS Safety Report 6585708-4 (Version None)
Quarter: 2010Q1

REPORT INFORMATION
  Report Type: 
  Country: None (occurrence: None)
  Receive Date: 20100217
  Receipt Date: 20100208
  Transmission Date: 20100710
  Serious: Yes (Hospitalization)
  Sender: FDA-Public Use
  Company Number: JP-B.I. PHARMACEUTICALS,INC./RIDGEFIELD-2010-BP-01063NB

PATIENT
  Sex: Female
  Weight: 36 kg

DRUGS (3)
  1. MOBIC [Suspect]
     Indication: SPINAL OSTEOARTHRITIS
     Dosage: 10 MG
     Route: 048
     Dates: start: 20090409, end: 20090605
  2. TIZANIDINE HCL [Suspect]
     Indication: SPINAL OSTEOARTHRITIS
     Dosage: 1 MG
     Route: 048
     Dates: start: 20090409, end: 20090605
  3. MUCOSTA [Suspect]
     Indication: PROPHYLAXIS AGAINST GASTROINTESTINAL ULCER
     Dosage: 100 MG
     Route: 048
     Dates: start: 20090409, end: 20090605

REACTIONS (1)
  - RHABDOMYOLYSIS [None]
